FAERS Safety Report 17778248 (Version 7)
Quarter: 2020Q3

REPORT INFORMATION
  Report Type: Report from Study
  Country: None (occurrence: GB)
  Receive Date: 20200513
  Receipt Date: 20200719
  Transmission Date: 20201102
  Serious: Yes (Death, Hospitalization)
  Sender: FDA-Public Use
  Company Number: GB-ABBVIE-20K-167-3398851-00

PATIENT
  Age: 80 Year
  Sex: Male

DRUGS (3)
  1. MADOPAR [Concomitant]
     Active Substance: BENSERAZIDE HYDROCHLORIDE\LEVODOPA
     Indication: PRODUCT USED FOR UNKNOWN INDICATION
  2. DUODOPA [Suspect]
     Active Substance: CARBIDOPA\LEVODOPA
     Dosage: 100ML CASSETTE DAILY?5MG/1ML?20MG/1ML
     Route: 050
     Dates: start: 2020, end: 2020
  3. DUODOPA [Suspect]
     Active Substance: CARBIDOPA\LEVODOPA
     Indication: PARKINSON^S DISEASE
     Dosage: 100ML CASSETTE DAILY?5MG/1ML?20MG/1ML
     Route: 050

REACTIONS (16)
  - Gait inability [Unknown]
  - COVID-19 [Fatal]
  - Pneumonia [Fatal]
  - Abdominal pain upper [Unknown]
  - Cardiac disorder [Unknown]
  - Stoma site discomfort [Unknown]
  - Carditis [Unknown]
  - Complication of device insertion [Unknown]
  - Tremor [Unknown]
  - Device issue [Unknown]
  - Medical device implantation [Not Recovered/Not Resolved]
  - Dysarthria [Unknown]
  - Aspiration [Unknown]
  - Myocardial infarction [Fatal]
  - Fall [Unknown]
  - Unevaluable event [Unknown]

NARRATIVE: CASE EVENT DATE: 2020
